FAERS Safety Report 18666626 (Version 1)
Quarter: 2020Q4

REPORT INFORMATION
  Report Type: Spontaneous
  Country: GB (occurrence: GB)
  Receive Date: 20201227
  Receipt Date: 20201227
  Transmission Date: 20210114
  Serious: Yes (Death)
  Sender: FDA-Public Use
  Company Number: GB-TEVA-2020-GB-1861953

PATIENT
  Age: 77 Year
  Sex: Female

DRUGS (3)
  1. AMIODARONE [Suspect]
     Active Substance: AMIODARONE
     Indication: ATRIAL FIBRILLATION
     Dosage: 900 MG
     Route: 065
     Dates: start: 20201019
  2. AMIODARONE [Suspect]
     Active Substance: AMIODARONE
     Dosage: PRESCRIBED FOR 500ML TO RUN OVER 24 HOURS, BUT INFUSION PUMP WAS SET FOR 250ML / 1 HOUR. UNIT DOSE:
     Route: 065
     Dates: start: 20201019, end: 20201019
  3. AMIODARONE [Suspect]
     Active Substance: AMIODARONE
     Dosage: 300 MG
     Route: 065
     Dates: start: 20201019

REACTIONS (3)
  - Presyncope [Fatal]
  - Prescribed overdose [Fatal]
  - Dizziness [Fatal]
